FAERS Safety Report 5509737-4 (Version None)
Quarter: 2007Q4

REPORT INFORMATION
  Report Type: 
  Country: None (occurrence: None)
  Receive Date: 20071107
  Receipt Date: 20071107
  Transmission Date: 20080405
  Serious: Yes (Life-Threatening, Hospitalization)
  Sender: FDA-Public Use
  Company Number: None

PATIENT
  Age: 5 Year
  Sex: Male
  Weight: 25 kg

DRUGS (2)
  1. VALPROIC ACID [Suspect]
     Indication: ABNORMAL BEHAVIOUR
     Dosage: 300 300 400 2000MG QID PO
     Route: 048
  2. RISPERDAL [Suspect]
     Dosage: 0.5MG DAILY PO
     Route: 048

REACTIONS (6)
  - BONE MARROW FAILURE [None]
  - DRUG TOXICITY [None]
  - HEPATIC ENZYME INCREASED [None]
  - NEUTROPENIA [None]
  - SEPTIC SHOCK [None]
  - THROMBOCYTOPENIA [None]
